FAERS Safety Report 6923236-4 (Version None)
Quarter: 2010Q3

REPORT INFORMATION
  Report Type: 
  Country: None (occurrence: None)
  Receive Date: 20100813
  Receipt Date: 20100703
  Transmission Date: 20110219
  Serious: Yes (Other)
  Sender: FDA-Public Use
  Company Number: US-PFIZER INC-2007009699

PATIENT
  Sex: Female

DRUGS (2)
  1. CHANTIX [Suspect]
     Dosage: UNK
  2. NICOTINE [Suspect]
     Dosage: UNK

REACTIONS (3)
  - ABNORMAL DREAMS [None]
  - HEADACHE [None]
  - HOSTILITY [None]
